FAERS Safety Report 12894134 (Version 17)
Quarter: 2017Q1

REPORT INFORMATION
  Report Type: Report from Study
  Country: MX (occurrence: MX)
  Receive Date: 20161028
  Receipt Date: 20170227
  Transmission Date: 20170428
  Serious: Yes (Hospitalization, Other)
  Sender: FDA-Public Use
  Company Number: MX-BAYER-2016-206426

PATIENT
  Age: 84 Year
  Sex: Male
  Weight: 68 kg

DRUGS (5)
  1. NEXAVAR [Suspect]
     Active Substance: SORAFENIB
     Indication: HEPATOCELLULAR CARCINOMA
     Dosage: 400 MG, BID
     Dates: start: 20160930
  2. TYLENOL [Concomitant]
     Active Substance: ACETAMINOPHEN
  3. NEXAVAR [Suspect]
     Active Substance: SORAFENIB
     Indication: HEPATOCELLULAR CARCINOMA
     Dosage: 600 MG, QD
     Dates: start: 20161017, end: 201611
  4. NEXAVAR [Suspect]
     Active Substance: SORAFENIB
     Indication: HEPATOCELLULAR CARCINOMA
     Dosage: 600 MG, QD
     Dates: start: 20161201
  5. ACETAMINOPHEN. [Concomitant]
     Active Substance: ACETAMINOPHEN

REACTIONS (51)
  - Metastases to lung [Not Recovered/Not Resolved]
  - Lethargy [Recovered/Resolved]
  - Rash [Recovered/Resolved]
  - Bone pain [Not Recovered/Not Resolved]
  - Hepatocellular carcinoma [Not Recovered/Not Resolved]
  - Haematochezia [None]
  - Lethargy [Recovered/Resolved]
  - Eating disorder [Not Recovered/Not Resolved]
  - Pyrexia [Recovered/Resolved]
  - Hypotension [Recovered/Resolved]
  - Pollakiuria [Recovered/Resolved]
  - Fluid intake reduced [Not Recovered/Not Resolved]
  - Dizziness [Not Recovered/Not Resolved]
  - Peripheral swelling [Unknown]
  - Pruritus [Recovered/Resolved]
  - Depression [Not Recovered/Not Resolved]
  - Faeces discoloured [Unknown]
  - Local swelling [None]
  - General physical health deterioration [Not Recovered/Not Resolved]
  - Palmar-plantar erythrodysaesthesia syndrome [None]
  - Palmoplantar keratoderma [Not Recovered/Not Resolved]
  - Headache [Not Recovered/Not Resolved]
  - Fatigue [Recovered/Resolved]
  - Head discomfort [Not Recovered/Not Resolved]
  - Malaise [Not Recovered/Not Resolved]
  - Diverticulum [Recovering/Resolving]
  - Dehydration [Recovered/Resolved]
  - Pleural effusion [Not Recovered/Not Resolved]
  - Abdominal distension [None]
  - Somnolence [Recovered/Resolved]
  - Pyrexia [Not Recovered/Not Resolved]
  - Hyperaesthesia [Not Recovered/Not Resolved]
  - Dry skin [Not Recovered/Not Resolved]
  - Unevaluable event [None]
  - Gait disturbance [Not Recovered/Not Resolved]
  - Pain [None]
  - Constipation [Not Recovered/Not Resolved]
  - Alopecia [Not Recovered/Not Resolved]
  - Lung disorder [Not Recovered/Not Resolved]
  - Haematochezia [Unknown]
  - Dyschezia [Not Recovered/Not Resolved]
  - Headache [Recovered/Resolved]
  - Blood glucose decreased [Unknown]
  - Fall [None]
  - Inflammation [Recovered/Resolved]
  - Toxicity to various agents [Recovered/Resolved]
  - Emotional disorder [Not Recovered/Not Resolved]
  - Depressed mood [Not Recovered/Not Resolved]
  - Fatigue [Not Recovered/Not Resolved]
  - Influenza [Not Recovered/Not Resolved]
  - Hepatic function abnormal [Not Recovered/Not Resolved]

NARRATIVE: CASE EVENT DATE: 2016
